FAERS Safety Report 5843840-4 (Version None)
Quarter: 2008Q3

REPORT INFORMATION
  Report Type: 
  Country: None (occurrence: None)
  Receive Date: 20080813
  Receipt Date: 20080804
  Transmission Date: 20090109
  Serious: Yes (Other)
  Sender: FDA-Public Use
  Company Number: PHBS2008TH05290

PATIENT
  Age: 55 Year
  Sex: Female

DRUGS (3)
  1. CYCLOSPORINE [Suspect]
     Indication: RENAL TRANSPLANT
  2. MYCOPHENOLATE MOFETIL [Concomitant]
     Indication: RENAL TRANSPLANT
  3. PREDNISOLONE [Concomitant]
     Indication: RENAL TRANSPLANT

REACTIONS (11)
  - AKINESIA [None]
  - DYSARTHRIA [None]
  - DYSKINESIA [None]
  - MENTAL STATUS CHANGES [None]
  - MUSCLE RIGIDITY [None]
  - MYOCLONUS [None]
  - PARKINSONIAN REST TREMOR [None]
  - PARKINSONISM [None]
  - STUPOR [None]
  - TORTICOLLIS [None]
  - TREMOR [None]
